FAERS Safety Report 10566595 (Version 2)
Quarter: 2014Q4

REPORT INFORMATION
  Report Type: Spontaneous
  Country: CN (occurrence: CN)
  Receive Date: 20141105
  Receipt Date: 20141112
  Transmission Date: 20150529
  Serious: Yes (Other)
  Sender: FDA-Public Use
  Company Number: CN-PFIZER INC-2014301688

PATIENT
  Age: 3 Year
  Sex: Female
  Weight: 26 kg

DRUGS (1)
  1. ZITHROMAX [Suspect]
     Active Substance: AZITHROMYCIN DIHYDRATE
     Indication: COUGH
     Dosage: 100 MG, 1X/DAY
     Route: 048
     Dates: start: 20141028, end: 20141030

REACTIONS (4)
  - Drug effect incomplete [Not Recovered/Not Resolved]
  - Anuria [Recovered/Resolved]
  - Abdominal pain [Recovered/Resolved]
  - Vomiting [Recovered/Resolved]

NARRATIVE: CASE EVENT DATE: 20141031
